FAERS Safety Report 6305396-1 (Version None)
Quarter: 2009Q3

REPORT INFORMATION
  Report Type: 
  Country: None (occurrence: None)
  Receive Date: 20090811
  Receipt Date: 20090730
  Transmission Date: 20100115
  Serious: Yes (Hospitalization)
  Sender: FDA-Public Use
  Company Number: US-JNJCH-2009020862

PATIENT
  Age: 11 Month
  Sex: Male
  Weight: 12.2 kg

DRUGS (1)
  1. DESITIN CREAMY DIAPER RASH OINTMENT [Suspect]
     Indication: DERMATITIS DIAPER
     Dosage: TEXT:SMALL AMOUNT ONCE
     Route: 061
     Dates: start: 20090728, end: 20090728

REACTIONS (1)
  - BLISTER [None]
